FAERS Safety Report 13397920 (Version 1)
Quarter: 2017Q2

REPORT INFORMATION
  Report Type: Spontaneous
  Country: CA (occurrence: CA)
  Receive Date: 20170403
  Receipt Date: 20170403
  Transmission Date: 20170830
  Serious: Yes (Death)
  Sender: FDA-Public Use
  Company Number: CA-HLSUS-2017-CA-000280

PATIENT
  Age: 36 Year
  Sex: Male
  Weight: 125 kg

DRUGS (10)
  1. FLUANXOL [Concomitant]
     Active Substance: FLUPENTIXOL
  2. RISPERIDONE. [Concomitant]
     Active Substance: RISPERIDONE
  3. HALOPERIDOL. [Concomitant]
     Active Substance: HALOPERIDOL
  4. VENLAFAXINE XR [Concomitant]
     Active Substance: VENLAFAXINE HYDROCHLORIDE
  5. SENOKOT [Concomitant]
     Active Substance: SENNOSIDES
  6. BENZTROPINE MESYLATE. [Concomitant]
     Active Substance: BENZTROPINE MESYLATE
  7. CLOZAPINE. [Suspect]
     Active Substance: CLOZAPINE
     Indication: SCHIZOPHRENIA
     Dosage: 25 MG ONCE DAILY
  8. LORAZEPAM. [Concomitant]
     Active Substance: LORAZEPAM
  9. ZOPICLONE [Concomitant]
     Active Substance: ZOPICLONE
  10. LACTULOSE. [Concomitant]
     Active Substance: LACTULOSE

REACTIONS (3)
  - Pulmonary embolism [Unknown]
  - Death [Fatal]
  - Faecaloma [Unknown]
